FAERS Safety Report 25528928 (Version 1)
Quarter: 2025Q3

REPORT INFORMATION
  Report Type: Spontaneous
  Country: US (occurrence: None)
  Receive Date: 20250707
  Receipt Date: 20250707
  Transmission Date: 20251020
  Serious: No
  Sender: FDA-CTU
  Company Number: None

PATIENT
  Age: 53 Year
  Sex: Female
  Weight: 84.6 kg

DRUGS (8)
  1. GLYCINE\TIRZEPATIDE [Suspect]
     Active Substance: GLYCINE\TIRZEPATIDE
     Indication: Weight decreased
     Route: 058
     Dates: start: 20250606, end: 20250614
  2. RALOXIFENE [Concomitant]
     Active Substance: RALOXIFENE
  3. SERTRALINE [Concomitant]
     Active Substance: SERTRALINE HYDROCHLORIDE
  4. OMEPRAZOLE [Concomitant]
     Active Substance: OMEPRAZOLE
  5. niacinimide [Concomitant]
  6. PROBIOTICS NOS [Concomitant]
     Active Substance: PROBIOTICS NOS
  7. VITAMIN D [Concomitant]
     Active Substance: VITAMIN D NOS
  8. CALCIUM [Concomitant]
     Active Substance: CALCIUM

REACTIONS (1)
  - Allodynia [None]

NARRATIVE: CASE EVENT DATE: 20250606
